FAERS Safety Report 10024370 (Version 1)
Quarter: 2014Q1

REPORT INFORMATION
  Report Type: Spontaneous
  Country: IR (occurrence: IR)
  Receive Date: 20140320
  Receipt Date: 20140320
  Transmission Date: 20141002
  Serious: Yes (Disabling, Other)
  Sender: FDA-Public Use
  Company Number: PHHY2014IR031793

PATIENT
  Age: 8 Year
  Sex: Male

DRUGS (1)
  1. RITALINE [Suspect]
     Indication: ATTENTION DEFICIT/HYPERACTIVITY DISORDER
     Dosage: 55 MG, TID
     Route: 048

REACTIONS (3)
  - Trigeminal neuralgia [Not Recovered/Not Resolved]
  - Amnesia [Not Recovered/Not Resolved]
  - Paramnesia [Not Recovered/Not Resolved]
